FAERS Safety Report 4544730-X (Version None)
Quarter: 2005Q1

REPORT INFORMATION
  Report Type: 
  Country: None (occurrence: None)
  Receive Date: 20050103
  Receipt Date: 20050103
  Transmission Date: 20050727
  Serious: Yes (Hospitalization)
  Sender: FDA-Public Use
  Company Number: None

PATIENT
  Age: 56 Year
  Sex: Male
  Weight: 86 kg

DRUGS (2)
  1. IFOSFAMIDE [Suspect]
     Dosage: 10.8GRAMS  INTRAVENOUS
     Route: 042
     Dates: start: 20040728, end: 20040728
  2. MESNA [Concomitant]

REACTIONS (2)
  - HAEMATURIA [None]
  - PANCYTOPENIA [None]
